FAERS Safety Report 8297011-5 (Version None)
Quarter: 2012Q2

REPORT INFORMATION
  Report Type: 
  Country: None (occurrence: None)
  Receive Date: 20120419
  Receipt Date: 20120410
  Transmission Date: 20120825
  Serious: Yes (Hospitalization)
  Sender: FDA-Public Use
  Company Number: US-BIOGENIDEC-2012BI012652

PATIENT
  Age: 55 Year
  Sex: Female

DRUGS (1)
  1. AVONEX [Suspect]
     Indication: MULTIPLE SCLEROSIS
     Route: 030
     Dates: start: 20050301

REACTIONS (6)
  - HEADACHE [None]
  - PAIN [None]
  - MULTIPLE SCLEROSIS RELAPSE [None]
  - CHILLS [None]
  - MULTIPLE SCLEROSIS [None]
  - PYREXIA [None]
